FAERS Safety Report 6824805-2 (Version None)
Quarter: 2010Q3

REPORT INFORMATION
  Report Type: 
  Country: None (occurrence: None)
  Receive Date: 20100708
  Receipt Date: 20100625
  Transmission Date: 20110219
  Serious: Yes (Death)
  Sender: FDA-Public Use
  Company Number: US-MYLANLABS-2010S1011460

PATIENT
  Sex: Female

DRUGS (1)
  1. FENTANYL-100 [Suspect]
     Indication: PAIN
     Route: 062
     Dates: start: 20081101, end: 20081201

REACTIONS (3)
  - NARCOTIC INTOXICATION [None]
  - OVERDOSE [None]
  - RESPIRATORY DEPRESSION [None]
